FAERS Safety Report 24575949 (Version 1)
Quarter: 2024Q4

REPORT INFORMATION
  Report Type: Spontaneous
  Country: US (occurrence: None)
  Receive Date: 20241101
  Receipt Date: 20241101
  Transmission Date: 20250114
  Serious: No
  Sender: Public
  Company Number: None

PATIENT
  Age: 45 Year
  Sex: Female
  Weight: 64.35 kg

DRUGS (8)
  1. PAXLOVID [Suspect]
     Active Substance: NIRMATRELVIR\RITONAVIR
     Indication: COVID-19
     Dosage: FREQUENCY : TWICE A DAY;?
     Route: 048
     Dates: start: 20241022, end: 20241026
  2. BUSPIRONE [Concomitant]
     Active Substance: BUSPIRONE HYDROCHLORIDE
  3. HYDROXYCHLOROQUINE [Concomitant]
     Active Substance: HYDROXYCHLOROQUINE
  4. PANTOPRAZOLE SODIUM [Concomitant]
     Active Substance: PANTOPRAZOLE SODIUM
  5. TYLENOL [Concomitant]
     Active Substance: ACETAMINOPHEN
  6. VITAMIN D3 [Concomitant]
     Active Substance: CHOLECALCIFEROL
  7. METHYL B12 AND FOLATE [Concomitant]
  8. DHA OMEGA 3^S [Concomitant]

REACTIONS (9)
  - Dysgeusia [None]
  - Oral disorder [None]
  - Insomnia [None]
  - Psychotic disorder [None]
  - Sensory disturbance [None]
  - Hallucination, auditory [None]
  - Hallucination, visual [None]
  - Conversion disorder [None]
  - Muscle spasticity [None]

NARRATIVE: CASE EVENT DATE: 20241027
